FAERS Safety Report 7590076-5 (Version None)
Quarter: 2011Q3

REPORT INFORMATION
  Report Type: 
  Country: None (occurrence: None)
  Receive Date: 20110705
  Receipt Date: 20110624
  Transmission Date: 20111222
  Serious: Yes (Life-Threatening, Hospitalization)
  Sender: FDA-Public Use
  Company Number: B0708701A

PATIENT
  Sex: Male
  Weight: 35 kg

DRUGS (5)
  1. BIOFERMIN [Concomitant]
     Route: 048
  2. ALLEGRA [Concomitant]
     Route: 048
  3. ACETAMINOPHEN [Concomitant]
     Indication: ANTIPYRESIS
     Route: 048
     Dates: start: 20110310, end: 20110311
  4. RELENZA [Suspect]
     Indication: INFLUENZA
     Route: 055
     Dates: start: 20110310, end: 20110314
  5. SELBEX [Concomitant]
     Route: 048

REACTIONS (10)
  - RASH [None]
  - RASH VESICULAR [None]
  - TOXIC EPIDERMAL NECROLYSIS [None]
  - PYREXIA [None]
  - DYSPNOEA [None]
  - CONJUNCTIVAL HYPERAEMIA [None]
  - STEVENS-JOHNSON SYNDROME [None]
  - SKIN EXFOLIATION [None]
  - TRACHEAL INFLAMMATION [None]
  - MUCOSAL EROSION [None]
